FAERS Safety Report 24030091 (Version 2)
Quarter: 2024Q3

REPORT INFORMATION
  Report Type: Spontaneous
  Country: US (occurrence: US)
  Receive Date: 20240628
  Receipt Date: 20240905
  Transmission Date: 20241017
  Serious: No
  Sender: PFIZER
  Company Number: US-PFIZER INC-202400179319

PATIENT
  Age: 39 Year
  Sex: Male

DRUGS (1)
  1. OXBRYTA [Suspect]
     Active Substance: VOXELOTOR
     Dosage: 1500 MG, 1X/DAY (3 TABLETS)
     Route: 048
     Dates: start: 20240516

REACTIONS (3)
  - Fatigue [Unknown]
  - Asthenia [Unknown]
  - Product dose omission in error [Unknown]
